FAERS Safety Report 5134674-7 (Version None)
Quarter: 2006Q4

REPORT INFORMATION
  Report Type: 
  Country: None (occurrence: None)
  Receive Date: 20061025
  Receipt Date: 20061018
  Transmission Date: 20070319
  Serious: Yes (Hospitalization)
  Sender: FDA-Public Use
  Company Number: DE-GLAXOSMITHKLINE-D0051252A

PATIENT
  Age: 39 Year
  Sex: Male
  Weight: 96 kg

DRUGS (1)
  1. QUILONUM RETARD [Suspect]
     Dosage: 9000MG SINGLE DOSE
     Route: 048
     Dates: start: 20061018, end: 20061018

REACTIONS (6)
  - DIARRHOEA [None]
  - DIPLOPIA [None]
  - INTENTIONAL OVERDOSE [None]
  - NYSTAGMUS [None]
  - SUICIDE ATTEMPT [None]
  - VOMITING [None]
